FAERS Safety Report 5951193-6 (Version None)
Quarter: 2008Q4

REPORT INFORMATION
  Report Type: 
  Country: None (occurrence: None)
  Receive Date: 20081111
  Receipt Date: 20081111
  Transmission Date: 20090506
  Serious: No
  Sender: FDA-Public Use
  Company Number: None

PATIENT
  Age: 55 Year
  Sex: Female
  Weight: 58.9676 kg

DRUGS (14)
  1. LIPITOR [Suspect]
     Indication: CORONARY ARTERY DISEASE
     Dosage: 80 MG ONE PER DAY PO
     Route: 048
     Dates: start: 20080514, end: 20080524
  2. LIPITOR [Suspect]
     Indication: HYPERLIPIDAEMIA
     Dosage: 80 MG ONE PER DAY PO
     Route: 048
     Dates: start: 20080514, end: 20080524
  3. FOSAMAX [Concomitant]
  4. DIOVAN [Concomitant]
  5. OPMEPERAZOLE [Concomitant]
  6. LARATADINE [Concomitant]
  7. MASONEX -NASONEX- [Concomitant]
  8. PREMARIN [Concomitant]
  9. VITAMIN D [Concomitant]
  10. CALCUIM -CALCIUM- [Concomitant]
  11. PENICILLIN [Concomitant]
  12. CECLOR [Concomitant]
  13. CLINAMYCIN [Concomitant]
  14. LISINOPRIL [Concomitant]

REACTIONS (5)
  - ASTHENIA [None]
  - BLOOD CREATINE PHOSPHOKINASE INCREASED [None]
  - ELECTROMYOGRAM ABNORMAL [None]
  - FATIGUE [None]
  - POLYMYOSITIS [None]
